FAERS Safety Report 20758739 (Version 1)
Quarter: 2022Q2

REPORT INFORMATION
  Report Type: Spontaneous
  Country: US (occurrence: US)
  Receive Date: 20220427
  Receipt Date: 20220427
  Transmission Date: 20220720
  Serious: No
  Sender: FDA-Public Use
  Company Number: US-PERRIGO-21US032343

PATIENT
  Age: 42 Year
  Sex: Female
  Weight: 72.562 kg

DRUGS (1)
  1. FAMOTIDINE [Suspect]
     Active Substance: FAMOTIDINE
     Indication: Reflux laryngitis
     Dosage: 10 MG, QD
     Route: 048
     Dates: start: 20211125, end: 20211130

REACTIONS (2)
  - Dyspepsia [Recovered/Resolved]
  - Drug ineffective [Unknown]

NARRATIVE: CASE EVENT DATE: 20211125
